FAERS Safety Report 18514128 (Version 2)
Quarter: 2021Q4

REPORT INFORMATION
  Report Type: Spontaneous
  Country: US (occurrence: US)
  Receive Date: 20201118
  Receipt Date: 20211116
  Transmission Date: 20220303
  Serious: No
  Sender: FDA-Public Use
  Company Number: US-ALLERGAN-2036915US

PATIENT
  Age: 71 Year
  Sex: Female

DRUGS (3)
  1. ALPHAGAN P [Suspect]
     Active Substance: BRIMONIDINE TARTRATE
     Indication: Glaucoma
     Dosage: 2 GTT, BID
     Route: 047
     Dates: start: 2020, end: 2020
  2. LATANOPROST [Concomitant]
     Active Substance: LATANOPROST
  3. DORZOLAMIDE [Concomitant]
     Active Substance: DORZOLAMIDE

REACTIONS (9)
  - Visual impairment [Unknown]
  - Product dose omission issue [Unknown]
  - Musculoskeletal stiffness [Not Recovered/Not Resolved]
  - Back pain [Not Recovered/Not Resolved]
  - Neck pain [Not Recovered/Not Resolved]
  - Suspected product contamination [Unknown]
  - Product container seal issue [Unknown]
  - Product packaging issue [Unknown]
  - Suspected product tampering [Unknown]

NARRATIVE: CASE EVENT DATE: 20200912
